FAERS Safety Report 9569253 (Version 1)
Quarter: 2013Q3

REPORT INFORMATION
  Report Type: Spontaneous
  Country: US (occurrence: US)
  Receive Date: 20130930
  Receipt Date: 20130930
  Transmission Date: 20140515
  Serious: No
  Sender: FDA-Public Use
  Company Number: US-AMGEN-USASP2013058412

PATIENT
  Age: 29 Year
  Sex: Female
  Weight: 56.69 kg

DRUGS (7)
  1. ENBREL [Suspect]
     Indication: RHEUMATOID ARTHRITIS
     Dosage: 50 MG, QWK
     Route: 058
  2. MELOXICAM [Concomitant]
     Dosage: 15 MG, UNK
  3. PREDNISONE [Concomitant]
     Dosage: 5 MG, UNK
  4. GABAPENTIN [Concomitant]
     Dosage: 300 MG, UNK
  5. OXYCODONE [Concomitant]
     Dosage: 5 MG, UNK
  6. METHOTREXATE [Concomitant]
     Dosage: 50MG/2ML
  7. LEUCOVORIN                         /00566701/ [Concomitant]
     Dosage: 350 MG, UNK

REACTIONS (1)
  - Drug ineffective [Unknown]
